FAERS Safety Report 8247107-9 (Version None)
Quarter: 2012Q1

REPORT INFORMATION
  Report Type: 
  Country: None (occurrence: None)
  Receive Date: 20120330
  Receipt Date: 20120321
  Transmission Date: 20120608
  Serious: Yes (Life-Threatening, Hospitalization)
  Sender: FDA-Public Use
  Company Number: GB-PERRIGO-12GB002370

PATIENT
  Age: 79 Year
  Sex: Female

DRUGS (2)
  1. ENALAPRIL MALEATE [Concomitant]
     Indication: PRODUCT USED FOR UNKNOWN INDICATION
     Route: 065
  2. IBUPROFEN [Suspect]
     Indication: INFLAMMATION
     Dosage: 400 MG, QID
     Route: 048
     Dates: start: 20120302, end: 20120310

REACTIONS (1)
  - GASTROINTESTINAL HAEMORRHAGE [None]
